FAERS Safety Report 10170499 (Version 5)
Quarter: 2014Q3

REPORT INFORMATION
  Report Type: Report from Study
  Country: CA (occurrence: CA)
  Receive Date: 20140513
  Receipt Date: 20140702
  Transmission Date: 20150326
  Serious: Yes (Hospitalization, Other)
  Sender: FDA-Public Use
  Company Number: CA-ABBVIE-14P-028-1234771-00

PATIENT
  Age: 77 Year
  Sex: Male

DRUGS (2)
  1. HUMIRA [Suspect]
     Active Substance: ADALIMUMAB
     Indication: PSORIASIS
     Dosage: LATEST DOSE: 26-JUN-2014
     Route: 058
     Dates: start: 20140103, end: 20140416
  2. HUMIRA [Suspect]
     Active Substance: ADALIMUMAB
     Route: 058
     Dates: start: 20140507

REACTIONS (17)
  - Heart rate irregular [Unknown]
  - Blood pressure abnormal [Unknown]
  - Blood insulin increased [Recovered/Resolved]
  - Unevaluable event [Not Recovered/Not Resolved]
  - Presyncope [Recovered/Resolved]
  - Body temperature increased [Recovered/Resolved]
  - Chills [Unknown]
  - Tremor [Unknown]
  - Dizziness [Not Recovered/Not Resolved]
  - Dizziness [Unknown]
  - Nausea [Unknown]
  - Body temperature decreased [Unknown]
  - Hypertension [Unknown]
  - Joint injury [Not Recovered/Not Resolved]
  - Chills [Not Recovered/Not Resolved]
  - Nausea [Not Recovered/Not Resolved]
  - Anaemia [Not Recovered/Not Resolved]

NARRATIVE: CASE EVENT DATE: 20140501
